FAERS Safety Report 9363483 (Version 2)
Quarter: 2013Q3

REPORT INFORMATION
  Report Type: Spontaneous
  Country: CN (occurrence: CN)
  Receive Date: 20130624
  Receipt Date: 20130821
  Transmission Date: 20140515
  Serious: Yes (Death, Other)
  Sender: FDA-Public Use
  Company Number: CN-ROCHE-1240451

PATIENT
  Age: 71 Year
  Sex: Female

DRUGS (1)
  1. HERCEPTIN [Suspect]
     Indication: HER-2 POSITIVE BREAST CANCER
     Route: 041
     Dates: start: 201305, end: 201306

REACTIONS (2)
  - Hepatic function abnormal [Unknown]
  - Disease progression [Fatal]
